FAERS Safety Report 14009545 (Version 1)
Quarter: 2017Q3

REPORT INFORMATION
  Report Type: Spontaneous
  Country: US (occurrence: US)
  Receive Date: 20170925
  Receipt Date: 20170925
  Transmission Date: 20171128
  Serious: Yes (Hospitalization, Other)
  Sender: FDA-Public Use
  Company Number: US-MYLANLABS-2017M1059557

PATIENT
  Sex: Male

DRUGS (6)
  1. BUPIVACAINE. [Concomitant]
     Active Substance: BUPIVACAINE
     Indication: BACK PAIN
     Dosage: 0.8432 MG/DAY
     Route: 065
     Dates: start: 2006
  2. MORPHINE [Suspect]
     Active Substance: MORPHINE
     Indication: BACK PAIN
     Route: 037
     Dates: start: 2004
  3. HYDROMORPHONE [Suspect]
     Active Substance: HYDROMORPHONE
     Indication: PAIN MANAGEMENT
     Route: 065
     Dates: start: 2006
  4. MORPHINE [Suspect]
     Active Substance: MORPHINE
     Dosage: 3.373 MG/DAY
     Route: 037
     Dates: start: 2006
  5. HYDROCODONE [Suspect]
     Active Substance: HYDROCODONE
     Indication: PAIN MANAGEMENT
     Route: 065
     Dates: start: 2006
  6. OXYCODONE [Suspect]
     Active Substance: OXYCODONE
     Indication: PAIN MANAGEMENT
     Route: 065
     Dates: start: 2006

REACTIONS (6)
  - Agitation [Recovered/Resolved]
  - Hypoxia [Unknown]
  - Confusional state [Recovered/Resolved]
  - Sedation [Recovered/Resolved]
  - Back pain [Recovering/Resolving]
  - Delirium [Recovered/Resolved]
